FAERS Safety Report 5390214-9 (Version None)
Quarter: 2007Q3

REPORT INFORMATION
  Report Type: 
  Country: None (occurrence: None)
  Receive Date: 20070716
  Receipt Date: 20061130
  Transmission Date: 20080115
  Serious: Yes (Disabling)
  Sender: FDA-Public Use
  Company Number: MPS1-10618

PATIENT
  Age: 7 Year
  Sex: Female
  Weight: 25.5 kg

DRUGS (4)
  1. ALDURAZYME [Suspect]
     Indication: MUCOPOLYSACCHARIDOSIS I
     Dosage: 0.58 MG/KG QWK IV
     Route: 042
     Dates: start: 20050101
  2. ALDURAZYME [Suspect]
     Indication: MUCOPOLYSACCHARIDOSIS I
     Dosage: 1.8 MG/KG Q2WKS IV
     Route: 042
     Dates: start: 20050201, end: 20050701
  3. CAPTOPRIL [Concomitant]
  4. TRUSOPT [Concomitant]

REACTIONS (4)
  - ABASIA [None]
  - CARPAL TUNNEL SYNDROME [None]
  - CERVICAL CORD COMPRESSION [None]
  - WHEELCHAIR USER [None]
